FAERS Safety Report 6318406-2 (Version None)
Quarter: 2009Q3

REPORT INFORMATION
  Report Type: 
  Country: None (occurrence: None)
  Receive Date: 20090820
  Receipt Date: 20090820
  Transmission Date: 20100115
  Serious: Yes (Death, Hospitalization)
  Sender: FDA-Public Use
  Company Number: None

PATIENT
  Sex: Male
  Weight: 97.9 kg

DRUGS (2)
  1. CYTARABINE [Suspect]
     Dosage: 230 MG
  2. DAUNORUBICIN HCL [Suspect]
     Dosage: 138 MG

REACTIONS (5)
  - GENERAL PHYSICAL HEALTH DETERIORATION [None]
  - HEART RATE ABNORMAL [None]
  - LEGIONELLA INFECTION [None]
  - RENAL DISORDER [None]
  - RESPIRATORY DISORDER [None]
